FAERS Safety Report 16163693 (Version 2)
Quarter: 2019Q3

REPORT INFORMATION
  Report Type: Report from Study
  Country: DE (occurrence: DE)
  Receive Date: 20190405
  Receipt Date: 20190704
  Transmission Date: 20191004
  Serious: Yes (Hospitalization, Other)
  Sender: FDA-Public Use
  Company Number: DE-ELI_LILLY_AND_COMPANY-DE201711000808

PATIENT
  Age: 33 Year
  Sex: Female
  Weight: 84 kg

DRUGS (18)
  1. INSULIN, LISPRO [Suspect]
     Active Substance: INSULIN LISPRO
     Dosage: 40 INTERNATIONAL UNIT, DAILY
     Route: 058
     Dates: start: 20170905, end: 20180717
  2. TOUJEO [Suspect]
     Active Substance: INSULIN GLARGINE
     Indication: PRODUCT USED FOR UNKNOWN INDICATION
     Dosage: 34 INTERNATIONAL UNIT, DAILY
     Route: 065
     Dates: start: 20180718
  3. DHEA [Concomitant]
     Active Substance: PRASTERONE
     Indication: PRODUCT USED FOR UNKNOWN INDICATION
     Dosage: UNK, UNKNOWN
     Route: 065
     Dates: start: 20070101
  4. INSULIN, LISPRO [Suspect]
     Active Substance: INSULIN LISPRO
     Indication: TYPE 1 DIABETES MELLITUS
     Dosage: 30 INTERNATIONAL UNIT, DAILY
     Route: 058
     Dates: start: 20141022
  5. LANTUS [Suspect]
     Active Substance: INSULIN GLARGINE
     Indication: TYPE 1 DIABETES MELLITUS
     Dosage: 15 INTERNATIONAL UNIT, DAILY
     Route: 051
     Dates: start: 20141210, end: 20170424
  6. LANTUS [Suspect]
     Active Substance: INSULIN GLARGINE
     Dosage: 15 U, DAILY
     Route: 065
     Dates: start: 20171130, end: 20180125
  7. LANTUS [Suspect]
     Active Substance: INSULIN GLARGINE
     Dosage: 10 U, DAILY
     Route: 065
     Dates: start: 20180130, end: 20180717
  8. HYDROCORTISONE. [Concomitant]
     Active Substance: HYDROCORTISONE
     Indication: PRODUCT USED FOR UNKNOWN INDICATION
     Dosage: UNK, UNKNOWN
     Route: 065
     Dates: start: 20070101
  9. FOLIC ACID. [Concomitant]
     Active Substance: FOLIC ACID
     Indication: PRODUCT USED FOR UNKNOWN INDICATION
     Dosage: UNK, UNKNOWN
     Route: 065
     Dates: start: 20170407
  10. INSUMAN BASAL [Suspect]
     Active Substance: INSULIN HUMAN
     Indication: TYPE 1 DIABETES MELLITUS
     Dosage: 34 IU, DAILY
     Route: 058
     Dates: start: 20170424
  11. INSULIN, LISPRO [Suspect]
     Active Substance: INSULIN LISPRO
     Dosage: 30 INTERNATIONAL UNIT, DAILY
     Route: 058
     Dates: start: 20190528
  12. LANTUS [Suspect]
     Active Substance: INSULIN GLARGINE
     Dosage: 34 INTERNATIONAL UNIT, DAILY
     Route: 058
  13. FLUDROCORTISON [Concomitant]
     Active Substance: FLUDROCORTISONE
     Indication: PRODUCT USED FOR UNKNOWN INDICATION
     Dosage: UNK, UNKNOWN
     Route: 065
     Dates: start: 20070101
  14. INSULIN, LISPRO [Suspect]
     Active Substance: INSULIN LISPRO
     Dosage: 12 INTERNATIONAL UNIT, DAILY
     Route: 058
     Dates: start: 20170905
  15. INSULIN, LISPRO [Suspect]
     Active Substance: INSULIN LISPRO
     Dosage: 30 INTERNATIONAL UNIT, DAILY
     Route: 058
     Dates: start: 20180815, end: 20181204
  16. INSUMAN BASAL [Suspect]
     Active Substance: INSULIN HUMAN
     Dosage: 38 IU, DAILY
     Route: 058
     Dates: start: 20170724, end: 20171115
  17. HYDROCORTISONE. [Concomitant]
     Active Substance: HYDROCORTISONE
     Dosage: UNK, UNKNOWN
     Route: 065
     Dates: start: 2007
  18. NOVORAPID [Concomitant]
     Active Substance: INSULIN ASPART
     Dosage: UNK
     Dates: start: 20180718, end: 20190527

REACTIONS (8)
  - Hyperglycaemia [Recovered/Resolved]
  - Exposure during pregnancy [Recovered/Resolved]
  - Hypoglycaemia [Recovered/Resolved]
  - Hyperglycaemia [Recovered/Resolved]
  - Hypoglycaemia [Recovered/Resolved]
  - Gastroenteritis norovirus [Recovered/Resolved]
  - Maternal exposure during breast feeding [Recovered/Resolved]
  - Gastroenteritis norovirus [Recovered/Resolved]

NARRATIVE: CASE EVENT DATE: 20170205
